FAERS Safety Report 20224281 (Version 1)
Quarter: 2021Q4

REPORT INFORMATION
  Report Type: Spontaneous
  Country: IN (occurrence: IN)
  Receive Date: 20211223
  Receipt Date: 20211223
  Transmission Date: 20220303
  Serious: Yes (Other)
  Sender: FDA-Public Use
  Company Number: IN-BAYER-2021A272698

PATIENT
  Age: 44 Year
  Sex: Female

DRUGS (10)
  1. SORAFENIB [Suspect]
     Active Substance: SORAFENIB
     Indication: Acute myeloid leukaemia
     Dosage: UNK
  2. AZACITIDINE [Suspect]
     Active Substance: AZACITIDINE
     Dosage: UNK
  3. IDARUBICIN [Suspect]
     Active Substance: IDARUBICIN
     Dosage: UNK
  4. CYTARABINE [Suspect]
     Active Substance: CYTARABINE
     Dosage: UNK
  5. MIDOSTAURIN [Suspect]
     Active Substance: MIDOSTAURIN
     Dosage: UNK
  6. GANCICLOVIR [Suspect]
     Active Substance: GANCICLOVIR
  7. METHYLPREDNISOLONE [Suspect]
     Active Substance: METHYLPREDNISOLONE
     Dosage: UNK
  8. PREDNISOLONE [Suspect]
     Active Substance: PREDNISOLONE
     Dosage: UNK
  9. BUSULFAN [Suspect]
     Active Substance: BUSULFAN
  10. FLUDARABINE [Suspect]
     Active Substance: FLUDARABINE PHOSPHATE
     Dosage: UNK

REACTIONS (9)
  - Neutropenia [None]
  - Bacterial infection [None]
  - Thrombocytopenia [None]
  - Cytomegalovirus hepatitis [Recovering/Resolving]
  - Cystitis viral [None]
  - Graft versus host disease [None]
  - Liver function test abnormal [None]
  - Rash [None]
  - Off label use [None]
